FAERS Safety Report 9391352 (Version 1)
Quarter: 2013Q3

REPORT INFORMATION
  Report Type: Spontaneous
  Country: FR (occurrence: FR)
  Receive Date: 20130709
  Receipt Date: 20130709
  Transmission Date: 20140515
  Serious: No
  Sender: FDA-Public Use
  Company Number: FR-ELI_LILLY_AND_COMPANY-FR201307002231

PATIENT
  Sex: Female

DRUGS (2)
  1. CYMBALTA [Suspect]
     Dosage: 1 DF, UNKNOWN
  2. CYMBALTA [Suspect]
     Dosage: 30 MG, UNKNOWN
     Route: 048

REACTIONS (1)
  - Off label use [Unknown]
